FAERS Safety Report 20698868 (Version 1)
Quarter: 2022Q2

REPORT INFORMATION
  Report Type: Spontaneous
  Country: CN (occurrence: CN)
  Receive Date: 20220412
  Receipt Date: 20220412
  Transmission Date: 20220721
  Serious: Yes (Other)
  Sender: FDA-Public Use
  Company Number: CN-ALKEM LABORATORIES LIMITED-CN-ALKEM-2022-03230

PATIENT
  Age: 61 Year
  Sex: Female

DRUGS (1)
  1. SIROLIMUS [Suspect]
     Active Substance: SIROLIMUS
     Indication: Product used for unknown indication
     Dosage: 1-3 MG PER DAY
     Route: 065

REACTIONS (3)
  - Gastrointestinal stromal tumour [Recovered/Resolved]
  - Platelet count decreased [Recovering/Resolving]
  - Therapy partial responder [Unknown]
